FAERS Safety Report 9107076 (Version 1)
Quarter: 2013Q1

REPORT INFORMATION
  Report Type: Spontaneous
  Country: DE (occurrence: DE)
  Receive Date: 20130221
  Receipt Date: 20130221
  Transmission Date: 20140127
  Serious: Yes (Other)
  Sender: FDA-Public Use
  Company Number: DE-UCBSA-075626

PATIENT
  Sex: Male

DRUGS (3)
  1. VIMPAT [Suspect]
     Indication: EPILEPSY
     Dosage: STRENGTH:200 MG
  2. TOPIRAMATE [Suspect]
     Indication: EPILEPSY
  3. CARBAMAZEPIN [Suspect]
     Indication: EPILEPSY

REACTIONS (1)
  - Pain in extremity [Recovering/Resolving]
